FAERS Safety Report 8943737 (Version 4)
Quarter: 2013Q1

REPORT INFORMATION
  Report Type: Spontaneous
  Country: CA (occurrence: CA)
  Receive Date: 20121203
  Receipt Date: 20130104
  Transmission Date: 20140127
  Serious: Yes (Death, Life-Threatening, Hospitalization)
  Sender: FDA-Public Use
  Company Number: CA-GLAXOSMITHKLINE-A0965378A

PATIENT
  Age: 48 Year
  Sex: Female
  Weight: 56 kg

DRUGS (7)
  1. TYKERB [Suspect]
     Indication: BREAST CANCER METASTATIC
     Dosage: 1250MG PER DAY
     Route: 048
     Dates: start: 20120128, end: 20121224
  2. XELODA [Suspect]
     Indication: METASTASES TO LIVER
     Dosage: 1800MG TWICE PER DAY
     Route: 048
     Dates: start: 20120302, end: 20121205
  3. VITAMIN D [Concomitant]
  4. CALCIUM [Concomitant]
  5. STEMETIL [Concomitant]
  6. TYLENOL [Concomitant]
  7. DEXAMETHASONE [Concomitant]

REACTIONS (20)
  - Diarrhoea [Recovered/Resolved]
  - Fatigue [Unknown]
  - Decreased appetite [Unknown]
  - Nausea [Not Recovered/Not Resolved]
  - Vomiting [Not Recovered/Not Resolved]
  - Erythema [Not Recovered/Not Resolved]
  - Skin discolouration [Not Recovered/Not Resolved]
  - Skin exfoliation [Not Recovered/Not Resolved]
  - Dry skin [Not Recovered/Not Resolved]
  - Skin fissures [Not Recovered/Not Resolved]
  - Pain [Not Recovered/Not Resolved]
  - Skin disorder [Not Recovered/Not Resolved]
  - Skin hypertrophy [Not Recovered/Not Resolved]
  - Skin fissures [Not Recovered/Not Resolved]
  - Gastrointestinal haemorrhage [Not Recovered/Not Resolved]
  - Gastritis [Not Recovered/Not Resolved]
  - Hepatic cancer [Unknown]
  - Weight decreased [Unknown]
  - Metastases to liver [Not Recovered/Not Resolved]
  - Death [Fatal]
